FAERS Safety Report 8236796-0 (Version None)
Quarter: 2012Q1

REPORT INFORMATION
  Report Type: 
  Country: None (occurrence: None)
  Receive Date: 20120327
  Receipt Date: 20120319
  Transmission Date: 20120608
  Serious: No
  Sender: FDA-Public Use
  Company Number: US-BAYER-2012-027022

PATIENT
  Sex: Female

DRUGS (1)
  1. MIRENA [Suspect]
     Indication: CONTRACEPTION
     Dosage: 20 MCG/24HR, CONT
     Route: 015
     Dates: start: 20080201

REACTIONS (25)
  - ASTHENIA [None]
  - CRYING [None]
  - TREMOR [None]
  - ABDOMINAL PAIN UPPER [None]
  - HYPOAESTHESIA [None]
  - VISION BLURRED [None]
  - INSOMNIA [None]
  - ANXIETY [None]
  - ARTHRALGIA [None]
  - MOOD SWINGS [None]
  - HEADACHE [None]
  - DYSPNOEA [None]
  - ABDOMINAL DISTENSION [None]
  - HAIR COLOUR CHANGES [None]
  - MUSCLE SPASMS [None]
  - FATIGUE [None]
  - WEIGHT INCREASED [None]
  - AMENORRHOEA [None]
  - DIZZINESS [None]
  - DEPRESSION [None]
  - LOSS OF LIBIDO [None]
  - ACNE [None]
  - HYPERHIDROSIS [None]
  - AMNESIA [None]
  - ALOPECIA [None]
